FAERS Safety Report 8518697-3 (Version None)
Quarter: 2012Q3

REPORT INFORMATION
  Report Type: 
  Country: None (occurrence: None)
  Receive Date: 20120718
  Receipt Date: 20110610
  Transmission Date: 20120928
  Serious: No
  Sender: FDA-Public Use
  Company Number: US-BRISTOL-MYERS SQUIBB COMPANY-15822463

PATIENT
  Sex: Male

DRUGS (1)
  1. COUMADIN [Suspect]
     Dosage: STOPPED FOR ABOUT A WEEK AND HALF,FOR TWO MONTHS ROUGHLY
     Dates: start: 20110301

REACTIONS (1)
  - ARTHRALGIA [None]
